FAERS Safety Report 15497499 (Version 1)
Quarter: 2018Q4

REPORT INFORMATION
  Report Type: Spontaneous
  Country: US (occurrence: US)
  Receive Date: 20181005
  Receipt Date: 20181005
  Transmission Date: 20190205
  Serious: No
  Sender: FDA-Public Use
  Company Number: None

PATIENT
  Age: 70 Year
  Sex: Female

DRUGS (19)
  1. ATENOLOL. [Concomitant]
     Active Substance: ATENOLOL
  2. MAGNEISUM [Concomitant]
  3. IBRANCE [Suspect]
     Active Substance: PALBOCICLIB
     Indication: BREAST CANCER
     Route: 048
     Dates: start: 20170919
  4. VITAMIN C [Concomitant]
     Active Substance: ASCORBIC ACID
  5. VITAMIN D3 [Concomitant]
     Active Substance: CHOLECALCIFEROL
  6. BACTRIM [Concomitant]
     Active Substance: SULFAMETHOXAZOLE\TRIMETHOPRIM
  7. DOCUSATE [Concomitant]
     Active Substance: DOCUSATE
  8. LATISSE [Concomitant]
     Active Substance: BIMATOPROST
  9. MINIVELLE [Concomitant]
     Active Substance: ESTRADIOL
  10. ROLAIDS [Concomitant]
     Active Substance: CALCIUM CARBONATE\MAGNESIUM HYDROXIDE
  11. ONDANSETRON [Concomitant]
     Active Substance: ONDANSETRON
  12. SOLUBE FIB/CHW PROBIOTIC [Concomitant]
  13. PHENAZOPYRID [Concomitant]
  14. TIMOLOL MAL [Concomitant]
  15. XGEVA [Concomitant]
     Active Substance: DENOSUMAB
  16. AMLOD/BENAZP [Concomitant]
  17. LATANOPROST. [Concomitant]
     Active Substance: LATANOPROST
  18. LORAZOPAM [Concomitant]
  19. WELLBUTRIN [Concomitant]
     Active Substance: BUPROPION HYDROCHLORIDE

REACTIONS (3)
  - Tendon disorder [None]
  - Kidney infection [None]
  - Urinary tract infection [None]

NARRATIVE: CASE EVENT DATE: 20180927
